FAERS Safety Report 5814573-5 (Version None)
Quarter: 2008Q3

REPORT INFORMATION
  Report Type: 
  Country: None (occurrence: None)
  Receive Date: 20080718
  Receipt Date: 20070912
  Transmission Date: 20090109
  Serious: No
  Sender: FDA-Public Use
  Company Number: US-KINGPHARMUSA00001-K200701178

PATIENT

DRUGS (5)
  1. LEVOXYL [Suspect]
     Indication: HYPOTHYROIDISM
     Dosage: 75 MCG, QD
     Route: 048
     Dates: start: 20060101
  2. LEVOXYL [Suspect]
     Dosage: 88 MCG, QD
     Route: 048
     Dates: start: 20060101
  3. LEVOXYL [Suspect]
     Dosage: ^BETWEEN 75 + 88^
     Route: 048
  4. BENADRYL [Concomitant]
     Indication: HYPERSENSITIVITY
     Dosage: 12.5 MG, BID
     Route: 048
  5. SUDAFED PE /00076302/ [Concomitant]
     Indication: HYPERSENSITIVITY
     Dosage: 5 MG, BID
     Route: 048

REACTIONS (14)
  - ABDOMINAL PAIN UPPER [None]
  - CHEST DISCOMFORT [None]
  - DRUG HYPERSENSITIVITY [None]
  - DRY EYE [None]
  - DYSPEPSIA [None]
  - DYSPHAGIA [None]
  - ERYTHEMA [None]
  - FEELING ABNORMAL [None]
  - FLATULENCE [None]
  - FLUSHING [None]
  - INCORRECT DOSE ADMINISTERED [None]
  - ORAL HERPES [None]
  - TREMOR [None]
  - UNEVALUABLE EVENT [None]
